FAERS Safety Report 9247831 (Version 1)
Quarter: 2013Q2

REPORT INFORMATION
  Report Type: Spontaneous
  Country: FR (occurrence: ES)
  Receive Date: 20130423
  Receipt Date: 20130423
  Transmission Date: 20140414
  Serious: Yes (Other)
  Sender: FDA-Public Use
  Company Number: FR-OTSUKA-US-2013-10659

PATIENT
  Age: 61 Year
  Sex: Female

DRUGS (4)
  1. BUSULFEX [Suspect]
     Indication: PLASMA CELL MYELOMA
     Dosage: 3.2 MG/KG, QD
     Dates: start: 20060705, end: 20060707
  2. MELPHALAN [Suspect]
     Indication: PLASMA CELL MYELOMA
     Dosage: 140 MG/M2, QD
     Dates: start: 20060708, end: 20060708
  3. ANTIBIOTICS [Suspect]
  4. PHENYTOIN SODIUM [Suspect]

REACTIONS (3)
  - Ejection fraction decreased [Unknown]
  - Mucosal inflammation [Unknown]
  - Corynebacterium infection [Unknown]
